FAERS Safety Report 8334530-7 (Version None)
Quarter: 2012Q2

REPORT INFORMATION
  Report Type: 
  Country: None (occurrence: None)
  Receive Date: 20120503
  Receipt Date: 20120426
  Transmission Date: 20120825
  Serious: Yes (Other)
  Sender: FDA-Public Use
  Company Number: GB-JNJFOC-20120413881

PATIENT
  Sex: Female

DRUGS (1)
  1. PALIPERIDONE [Suspect]
     Indication: PRODUCT USED FOR UNKNOWN INDICATION
     Route: 030
     Dates: start: 20110101

REACTIONS (7)
  - COUGH [None]
  - EAR DISCOMFORT [None]
  - DISTURBANCE IN ATTENTION [None]
  - TREMOR [None]
  - SLEEP DISORDER [None]
  - BALANCE DISORDER [None]
  - ANGINA PECTORIS [None]
